FAERS Safety Report 25763632 (Version 1)
Quarter: 2025Q3

REPORT INFORMATION
  Report Type: Spontaneous
  Country: US (occurrence: US)
  Receive Date: 20250905
  Receipt Date: 20250905
  Transmission Date: 20251021
  Serious: No
  Sender: DOMPE FARMACEUTICI
  Company Number: US-FARMAPROD-202410-3578

PATIENT
  Sex: Female

DRUGS (10)
  1. OXERVATE [Suspect]
     Active Substance: CENEGERMIN-BKBJ
     Indication: Neurotrophic keratopathy
     Route: 047
     Dates: start: 20240905
  2. ATORVASTATIN CALCIUM [Concomitant]
     Active Substance: ATORVASTATIN CALCIUM
  3. ASPIRIN [Concomitant]
     Active Substance: ASPIRIN
  4. SOLIFENACIN SUCCINATE [Concomitant]
     Active Substance: SOLIFENACIN SUCCINATE
  5. METHOTREXATE [Concomitant]
     Active Substance: METHOTREXATE
  6. METOPROLOL SUCCINATE [Concomitant]
     Active Substance: METOPROLOL SUCCINATE
  7. REPHRESH GEL [Concomitant]
  8. VEVYE [Concomitant]
     Active Substance: CYCLOSPORINE
  9. EYSUVIS [Concomitant]
     Active Substance: LOTEPREDNOL ETABONATE
  10. IVIZIA [Concomitant]
     Active Substance: POVIDONE

REACTIONS (1)
  - Eye pain [Unknown]
